FAERS Safety Report 17855248 (Version 1)
Quarter: 2020Q2

REPORT INFORMATION
  Report Type: Spontaneous
  Country: US (occurrence: US)
  Receive Date: 20200603
  Receipt Date: 20200603
  Transmission Date: 20200714
  Serious: No
  Sender: FDA-Public Use
  Company Number: None

PATIENT
  Age: 25 Year
  Sex: Male

DRUGS (1)
  1. VANCOMYCIN [Suspect]
     Active Substance: VANCOMYCIN
     Indication: GROIN INFECTION
     Route: 042
     Dates: start: 20200531

REACTIONS (4)
  - Infusion site erythema [None]
  - Infusion site pruritus [None]
  - Feeling hot [None]
  - Urticaria [None]

NARRATIVE: CASE EVENT DATE: 20200601
